FAERS Safety Report 15496093 (Version 1)
Quarter: 2018Q4

REPORT INFORMATION
  Report Type: Spontaneous
  Country: US (occurrence: US)
  Receive Date: 20181012
  Receipt Date: 20181012
  Transmission Date: 20190205
  Serious: No
  Sender: FDA-Public Use
  Company Number: US-TEVA-2018-US-961665

PATIENT
  Age: 86 Year
  Sex: Male

DRUGS (1)
  1. METOPERTAB-A (METOPROLOL SUCCINATE) [Suspect]
     Active Substance: METOPROLOL SUCCINATE
     Indication: BLOOD PRESSURE ABNORMAL
     Route: 065
     Dates: start: 20180828, end: 20181002

REACTIONS (7)
  - Cough [Unknown]
  - Gingival discomfort [Unknown]
  - Alopecia [Unknown]
  - Pain of skin [Unknown]
  - Oral discomfort [Unknown]
  - Throat irritation [Unknown]
  - Tongue discomfort [Unknown]

NARRATIVE: CASE EVENT DATE: 20180828
